FAERS Safety Report 11288566 (Version 1)
Quarter: 2015Q3

REPORT INFORMATION
  Report Type: Spontaneous
  Country: US (occurrence: US)
  Receive Date: 20150721
  Receipt Date: 20150721
  Transmission Date: 20151125
  Serious: No
  Sender: FDA-Public Use
  Company Number: US-UNITED THERAPEUTICS-UNT-2015-003229

PATIENT
  Age: 72 Year
  Sex: Female
  Weight: 76.37 kg

DRUGS (5)
  1. REMODULIN [Suspect]
     Active Substance: TREPROSTINIL
     Dosage: 0.062 ?G/KG/MIN, CONTINUING
     Route: 058
     Dates: start: 20120805
  2. WARFARIN [Concomitant]
     Active Substance: WARFARIN
     Indication: PRODUCT USED FOR UNKNOWN INDICATION
  3. REMODULIN [Suspect]
     Active Substance: TREPROSTINIL
     Indication: PULMONARY ARTERIAL HYPERTENSION
     Dosage: 0.062 ?G/KG/MIN, CONTINUING
     Route: 058
     Dates: start: 20131203
  4. ADEMPAS [Concomitant]
     Active Substance: RIOCIGUAT
     Indication: PRODUCT USED FOR UNKNOWN INDICATION
  5. TRACLEER [Concomitant]
     Active Substance: BOSENTAN
     Indication: PRODUCT USED FOR UNKNOWN INDICATION

REACTIONS (8)
  - Weight decreased [Unknown]
  - Infusion site erythema [Unknown]
  - Large intestine polyp [Unknown]
  - Tooth abscess [Unknown]
  - Infusion site pain [Unknown]
  - Haemorrhoids [Unknown]
  - Infusion site discolouration [Unknown]
  - Infusion site oedema [Unknown]

NARRATIVE: CASE EVENT DATE: 201503
